FAERS Safety Report 8723497 (Version 4)
Quarter: 2012Q4

REPORT INFORMATION
  Report Type: 
  Country: US (occurrence: US)
  Receive Date: 20120814
  Receipt Date: 20120911
  Transmission Date: 20130627
  Serious: Yes (Death, Hospitalization)
  Sender: FDA-Public Use
  Company Number: US-BAXTER-2012BAX013800

PATIENT
  Age: 90 Year
  Sex: Female

DRUGS (1)
  1. DIANEAL LOW CALCIUM [Suspect]
     Indication: PERITONEAL DIALYSIS
     Route: 033
     Dates: end: 20120812

REACTIONS (6)
  - Cardio-respiratory arrest [Fatal]
  - Cardiac disorder [Fatal]
  - Cardiac failure [Fatal]
  - Myocardial infarction [Fatal]
  - Respiratory failure [Fatal]
  - Cardiac arrest [Fatal]
